FAERS Safety Report 19196397 (Version 1)
Quarter: 2021Q2

REPORT INFORMATION
  Report Type: Spontaneous
  Country: US (occurrence: US)
  Receive Date: 20210429
  Receipt Date: 20210429
  Transmission Date: 20210717
  Serious: No
  Sender: FDA-Public Use
  Company Number: US-ASTRAZENECA-2021A267401

PATIENT
  Sex: Female
  Weight: 90.7 kg

DRUGS (3)
  1. INSULIN [Concomitant]
     Active Substance: INSULIN NOS
  2. BYETTA [Suspect]
     Active Substance: EXENATIDE
     Indication: TYPE 2 DIABETES MELLITUS
     Dosage: LOW DOSE AFTER THAT THE DOSE WAS BUILT UP
     Route: 058
     Dates: start: 200611
  3. VICTOZA [Concomitant]
     Active Substance: LIRAGLUTIDE

REACTIONS (11)
  - Weight decreased [Recovered/Resolved]
  - Decreased appetite [Unknown]
  - Exostosis [Not Recovered/Not Resolved]
  - Cervicogenic headache [Recovering/Resolving]
  - General physical condition abnormal [Recovered/Resolved]
  - Weight increased [Recovered/Resolved]
  - Hypophagia [Unknown]
  - Nerve compression [Recovering/Resolving]
  - Vomiting [Recovered/Resolved]
  - Headache [Recovered/Resolved]
  - Nausea [Recovered/Resolved]
